FAERS Safety Report 6130924-9 (Version None)
Quarter: 2009Q1

REPORT INFORMATION
  Report Type: 
  Country: None (occurrence: None)
  Receive Date: 20090318
  Receipt Date: 20090306
  Transmission Date: 20090719
  Serious: Yes (Death, Other)
  Sender: FDA-Public Use
  Company Number: THYM-1000886

PATIENT
  Age: 25 Year
  Sex: Male

DRUGS (5)
  1. THYMOGLOBULIN [Suspect]
     Indication: APLASTIC ANAEMIA
     Dosage: 3.2 MG/KG, QD, INTRAVENOUS
     Route: 042
     Dates: start: 20081211, end: 20081215
  2. CYCLOSPORINE [Concomitant]
  3. ACYCLOVIR [Concomitant]
  4. FENTANYL CITRATE [Concomitant]
  5. PLASMA [Concomitant]

REACTIONS (11)
  - ALANINE AMINOTRANSFERASE INCREASED [None]
  - ASPARTATE AMINOTRANSFERASE INCREASED [None]
  - BLOOD CREATINE PHOSPHOKINASE INCREASED [None]
  - BLOOD LACTATE DEHYDROGENASE INCREASED [None]
  - DYSHIDROSIS [None]
  - HAEMORRHAGE [None]
  - HAEMORRHAGIC DIATHESIS [None]
  - HERPES VIRUS INFECTION [None]
  - MULTI-ORGAN FAILURE [None]
  - WHITE BLOOD CELL COUNT DECREASED [None]
  - WHITE BLOOD CELL COUNT INCREASED [None]
